FAERS Safety Report 21815153 (Version 1)
Quarter: 2023Q1

REPORT INFORMATION
  Report Type: Spontaneous
  Country: CA (occurrence: CA)
  Receive Date: 20230104
  Receipt Date: 20230104
  Transmission Date: 20230417
  Serious: Yes (Hospitalization)
  Sender: FDA-Public Use
  Company Number: CA-CELLTRION INC.-2022CA021968

PATIENT

DRUGS (6)
  1. INFLECTRA [Suspect]
     Active Substance: INFLIXIMAB-DYYB
     Dosage: INDUCTION DOSES AT WEEK 0, 2 AND 6, THEN EVERY 8 WEEKS
     Route: 064
     Dates: start: 20170821, end: 20180514
  2. INFLECTRA [Suspect]
     Active Substance: INFLIXIMAB-DYYB
     Dosage: 400 MG, EVERY 8 WEEKS
     Route: 064
     Dates: start: 20180730
  3. INFLECTRA [Suspect]
     Active Substance: INFLIXIMAB-DYYB
     Dosage: 400 MG, EVERY 8 WEEKS
     Route: 064
     Dates: start: 20221102
  4. EPIPEN [Concomitant]
     Active Substance: EPINEPHRINE
     Dosage: 1 DF, AS NEEDED
  5. CORTISONE [Concomitant]
     Active Substance: CORTISONE
     Dosage: 1 DF, DOSAGE NOT AVAILABLE
     Route: 061
     Dates: start: 201912
  6. PEN-V [PHENOXYMETHYLPENICILLIN] [Concomitant]
     Dosage: 600 MG, 1X/DAY
     Route: 065

REACTIONS (2)
  - Premature baby [Unknown]
  - Paternal exposure during pregnancy [Unknown]

NARRATIVE: CASE EVENT DATE: 20221201
